FAERS Safety Report 13548876 (Version 1)
Quarter: 2017Q2

REPORT INFORMATION
  Report Type: Spontaneous
  Country: US (occurrence: US)
  Receive Date: 20170515
  Receipt Date: 20170515
  Transmission Date: 20170830
  Serious: No
  Sender: FDA-Public Use
  Company Number: None

PATIENT
  Age: 50 Year
  Sex: Female

DRUGS (1)
  1. ZARXIO [Suspect]
     Active Substance: FILGRASTIM-SNDZ

REACTIONS (4)
  - Upper respiratory tract infection [None]
  - Oropharyngeal pain [None]
  - Pyrexia [None]
  - Bacterial infection [None]

NARRATIVE: CASE EVENT DATE: 20170501
